FAERS Safety Report 9819086 (Version 4)
Quarter: 2014Q1

REPORT INFORMATION
  Report Type: Spontaneous
  Country: US (occurrence: US)
  Receive Date: 20140115
  Receipt Date: 20140327
  Transmission Date: 20141002
  Serious: Yes (Death, Life-Threatening, Hospitalization, Other)
  Sender: FDA-Public Use
  Company Number: US-009507513-1401USA004911

PATIENT
  Sex: Female
  Weight: 88.44 kg

DRUGS (7)
  1. JANUVIA [Suspect]
     Indication: TYPE 2 DIABETES MELLITUS
     Dosage: 100 MG, QD
     Route: 048
     Dates: start: 20090215, end: 20111027
  2. LANTUS [Concomitant]
     Indication: TYPE 2 DIABETES MELLITUS
     Dosage: UNK
     Route: 058
  3. ACTOS [Concomitant]
     Indication: TYPE 2 DIABETES MELLITUS
  4. HYDROCHLOROTHIAZIDE [Concomitant]
     Indication: HYPERTENSION
  5. NORVASC [Concomitant]
     Indication: HYPERTENSION
     Dosage: 5 MG, HS
     Route: 048
  6. HYDRALAZINE [Concomitant]
     Indication: HYPERTENSION
  7. INSULIN [Concomitant]

REACTIONS (36)
  - Pancreatic carcinoma [Fatal]
  - Intestinal operation [Unknown]
  - Dehydration [Recovered/Resolved]
  - Anaemia [Not Recovered/Not Resolved]
  - Renal failure acute [Unknown]
  - Renal failure acute [Recovered/Resolved]
  - Hypercholesterolaemia [Unknown]
  - Rectal fissure [Unknown]
  - Cardiac murmur [Unknown]
  - Anxiety [Unknown]
  - Pyrexia [Recovered/Resolved]
  - Leukocytosis [Recovering/Resolving]
  - Malignant ascites [Unknown]
  - Hyperkalaemia [Recovering/Resolving]
  - Hyponatraemia [Recovering/Resolving]
  - Diabetes mellitus inadequate control [Recovering/Resolving]
  - Flank pain [Unknown]
  - Pyrexia [Unknown]
  - Hepatic cyst [Unknown]
  - Fatigue [Unknown]
  - Asthenia [Unknown]
  - Erythema [Unknown]
  - Decreased appetite [Unknown]
  - Sleep apnoea syndrome [Unknown]
  - Cough [Unknown]
  - Cachexia [Unknown]
  - Haemorrhoids [Unknown]
  - Gastrooesophageal reflux disease [Unknown]
  - Influenza like illness [Recovered/Resolved]
  - Hypoglycaemia [Unknown]
  - Liver function test abnormal [Unknown]
  - Diarrhoea [Recovered/Resolved]
  - Back pain [Not Recovered/Not Resolved]
  - Diarrhoea [Recovered/Resolved]
  - Pain in extremity [Unknown]
  - Treatment failure [Unknown]
